FAERS Safety Report 21488240 (Version 1)
Quarter: 2022Q4

REPORT INFORMATION
  Report Type: Report from Study
  Country: US (occurrence: US)
  Receive Date: 20221020
  Receipt Date: 20221020
  Transmission Date: 20230113
  Serious: Yes (Hospitalization, Other)
  Sender: FDA-Public Use
  Company Number: US-BoehringerIngelheim-2021-BI-105735

PATIENT
  Sex: Male

DRUGS (4)
  1. OFEV [Suspect]
     Active Substance: NINTEDANIB
     Indication: Idiopathic pulmonary fibrosis
     Route: 048
  2. OFEV [Suspect]
     Active Substance: NINTEDANIB
     Route: 048
  3. OFEV [Suspect]
     Active Substance: NINTEDANIB
     Route: 048
  4. OXYGEN [Concomitant]
     Active Substance: OXYGEN
     Indication: Product used for unknown indication
     Dosage: WEARS 4L OF OXYGEN

REACTIONS (16)
  - Pneumonia [Not Recovered/Not Resolved]
  - Fall [Unknown]
  - Dementia [Not Recovered/Not Resolved]
  - Colon cancer [Not Recovered/Not Resolved]
  - Nausea [Not Recovered/Not Resolved]
  - Diarrhoea [Not Recovered/Not Resolved]
  - Diarrhoea [Recovered/Resolved]
  - Dizziness [Not Recovered/Not Resolved]
  - Diarrhoea [Recovered/Resolved]
  - Headache [Not Recovered/Not Resolved]
  - Hypoacusis [Not Recovered/Not Resolved]
  - Disorientation [Not Recovered/Not Resolved]
  - Amnesia [Not Recovered/Not Resolved]
  - Arthralgia [Not Recovered/Not Resolved]
  - Treatment noncompliance [Not Recovered/Not Resolved]
  - Dyspnoea exertional [Unknown]
